FAERS Safety Report 21199020 (Version 1)
Quarter: 2022Q3

REPORT INFORMATION
  Report Type: Spontaneous
  Country: ES (occurrence: ES)
  Receive Date: 20220811
  Receipt Date: 20220811
  Transmission Date: 20221026
  Serious: Yes (Hospitalization, Other)
  Sender: FDA-Public Use
  Company Number: ES-FERRINGPH-2022FE04086

PATIENT
  Age: 46 Year
  Sex: Male

DRUGS (7)
  1. MESALAMINE [Suspect]
     Active Substance: MESALAMINE
     Indication: Crohn^s disease
     Dosage: 1000 MILLIGRAM, BID
     Route: 048
     Dates: start: 20151104
  2. ACETAMINOPHEN [Concomitant]
     Active Substance: ACETAMINOPHEN
     Indication: Pain
     Dosage: 1000 MILLIGRAM, BID
     Route: 048
     Dates: start: 20190109
  3. ATENOLOL [Concomitant]
     Active Substance: ATENOLOL
     Indication: Arrhythmia
     Dosage: 50 MILLIGRAM, QD
     Route: 048
     Dates: start: 20171220
  4. PREDNISONE [Concomitant]
     Active Substance: PREDNISONE
     Indication: Crohn^s disease
     Dosage: 30 MILLIGRAM, QID
     Route: 048
     Dates: start: 2019
  5. PROTEIN [Concomitant]
     Active Substance: PROTEIN
     Indication: Malnutrition
     Dosage: UNK UNK, QD
     Dates: start: 20190201
  6. CALCIUM CARBONATE [Concomitant]
     Active Substance: CALCIUM CARBONATE
     Indication: Prophylaxis
     Dosage: 500/400 MILLIGRAM, QD
     Route: 048
     Dates: start: 20190809
  7. OMEPRAZOLE [Concomitant]
     Active Substance: OMEPRAZOLE
     Indication: Duodenal ulcer
     Dosage: 20 MILLIGRAM, QD
     Route: 048
     Dates: start: 2019

REACTIONS (2)
  - Haematochezia [Recovered/Resolved]
  - Treatment noncompliance [Unknown]
